FAERS Safety Report 24456091 (Version 2)
Quarter: 2024Q4

REPORT INFORMATION
  Report Type: Report from Study
  Country: TH (occurrence: TH)
  Receive Date: 20241017
  Receipt Date: 20241018
  Transmission Date: 20250114
  Serious: No
  Sender: ROCHE
  Company Number: TH-ROCHE-3509495

PATIENT

DRUGS (5)
  1. RITUXIMAB [Interacting]
     Active Substance: RITUXIMAB
     Indication: Nervous system disorder
     Route: 065
  2. MYCOPHENOLATE MOFETIL [Interacting]
     Active Substance: MYCOPHENOLATE MOFETIL
     Indication: Nervous system disorder
     Route: 065
  3. OCRELIZUMAB [Interacting]
     Active Substance: OCRELIZUMAB
     Indication: Nervous system disorder
     Route: 065
  4. FINGOLIMOD [Interacting]
     Active Substance: FINGOLIMOD
     Indication: Nervous system disorder
     Route: 065
  5. PREDNISOLONE [Interacting]
     Active Substance: PREDNISOLONE
     Indication: Nervous system disorder
     Route: 065

REACTIONS (2)
  - Vaccination failure [Unknown]
  - Vaccine interaction [Unknown]
